FAERS Safety Report 7243415-9 (Version None)
Quarter: 2011Q1

REPORT INFORMATION
  Report Type: 
  Country: None (occurrence: None)
  Receive Date: 20110125
  Receipt Date: 20110118
  Transmission Date: 20110831
  Serious: Yes (Hospitalization)
  Sender: FDA-Public Use
  Company Number: IL-ABBOTT-09P-082-0575827-00

PATIENT
  Age: 57 Year
  Sex: Female

DRUGS (3)
  1. METHOTREXATE [Concomitant]
     Indication: PRODUCT USED FOR UNKNOWN INDICATION
  2. PREDNISONE [Concomitant]
     Indication: PRODUCT USED FOR UNKNOWN INDICATION
     Dosage: 10 MG DAILY
  3. HUMIRA [Suspect]
     Indication: RHEUMATOID ARTHRITIS
     Dates: start: 20081001, end: 20090501

REACTIONS (9)
  - DIVERTICULITIS [None]
  - FISTULA [None]
  - DIARRHOEA [None]
  - GASTRITIS [None]
  - EXTRAPULMONARY TUBERCULOSIS [None]
  - ANAL ABSCESS [None]
  - NECROTISING GRANULOMATOUS LYMPHADENITIS [None]
  - TUBERCULOSIS [None]
  - ABDOMINAL PAIN [None]
